FAERS Safety Report 6149276-3 (Version None)
Quarter: 2009Q2

REPORT INFORMATION
  Report Type: 
  Country: None (occurrence: None)
  Receive Date: 20090406
  Receipt Date: 20090406
  Transmission Date: 20091009
  Serious: No
  Sender: FDA-Public Use
  Company Number: None

PATIENT
  Age: 66 Year
  Sex: Male
  Weight: 63.5036 kg

DRUGS (1)
  1. VIRACEPT [Suspect]
     Indication: ANTIRETROVIRAL THERAPY
     Dosage: 2 625MG TABS 2X DAY PO
     Route: 048

REACTIONS (4)
  - ARTHRALGIA [None]
  - GAIT DISTURBANCE [None]
  - JOINT STIFFNESS [None]
  - MEDIAL TIBIAL STRESS SYNDROME [None]
